FAERS Safety Report 19391395 (Version 3)
Quarter: 2021Q3

REPORT INFORMATION
  Report Type: Spontaneous
  Country: AU (occurrence: AU)
  Receive Date: 20210608
  Receipt Date: 20210713
  Transmission Date: 20211014
  Serious: No
  Sender: FDA-Public Use
  Company Number: AU-AMGEN-AUSSP2021084780

PATIENT

DRUGS (1)
  1. PROLIA [Suspect]
     Active Substance: DENOSUMAB
     Indication: OSTEOPOROSIS POSTMENOPAUSAL
     Dosage: UNK UNK, QMO
     Route: 065

REACTIONS (6)
  - Soft tissue injury [Unknown]
  - Meniscus injury [Unknown]
  - Treatment noncompliance [Unknown]
  - Osteoarthritis [Unknown]
  - Contusion [Unknown]
  - Fall [Unknown]
